FAERS Safety Report 12116849 (Version 1)
Quarter: 2016Q1

REPORT INFORMATION
  Report Type: Spontaneous
  Country: FR (occurrence: FR)
  Receive Date: 20160225
  Receipt Date: 20160225
  Transmission Date: 20160526
  Serious: Yes (Death)
  Sender: FDA-Public Use
  Company Number: FR-ABBVIE-16P-056-1568004-00

PATIENT
  Age: 80 Year
  Sex: Female

DRUGS (5)
  1. ALDACTONE [Concomitant]
     Active Substance: SPIRONOLACTONE
     Indication: PRODUCT USED FOR UNKNOWN INDICATION
  2. MACROGOL 4000 [Concomitant]
     Active Substance: POLYETHYLENE GLYCOL 4000
     Indication: PRODUCT USED FOR UNKNOWN INDICATION
  3. ZECLAR [Suspect]
     Active Substance: CLARITHROMYCIN
     Indication: INTERTRIGO
     Route: 065
     Dates: start: 20160202, end: 20160203
  4. PLAVIX [Concomitant]
     Active Substance: CLOPIDOGREL BISULFATE
     Indication: PRODUCT USED FOR UNKNOWN INDICATION
  5. COLCHICINE. [Suspect]
     Active Substance: COLCHICINE
     Indication: GOUT
     Route: 065
     Dates: end: 20160128

REACTIONS (5)
  - Hypotension [Fatal]
  - Shock [Fatal]
  - Lipase increased [Fatal]
  - Hepatitis [Fatal]
  - Vomiting [Fatal]

NARRATIVE: CASE EVENT DATE: 20160202
